FAERS Safety Report 6741475-2 (Version None)
Quarter: 2010Q2

REPORT INFORMATION
  Report Type: 
  Country: None (occurrence: None)
  Receive Date: 20100524
  Receipt Date: 20100507
  Transmission Date: 20101027
  Serious: Yes (Other)
  Sender: FDA-Public Use
  Company Number: BCN-AS-2010-RR- 121

PATIENT
  Age: 60 Year
  Sex: Female

DRUGS (3)
  1. CLARITHROMYCIN [Suspect]
     Indication: MYCOBACTERIUM AVIUM COMPLEX INFECTION
     Dosage: 500MG BID, ORAL
     Route: 048
     Dates: start: 20100323, end: 20100416
  2. ETHAMBUTOL (ETHAMBUTOL) [Concomitant]
  3. RIFAMPICIN [Concomitant]

REACTIONS (1)
  - AFFECT LABILITY [None]
